FAERS Safety Report 7676523-9 (Version None)
Quarter: 2011Q3

REPORT INFORMATION
  Report Type: 
  Country: None (occurrence: None)
  Receive Date: 20110805
  Receipt Date: 20110722
  Transmission Date: 20111222
  Serious: Yes (Hospitalization)
  Sender: FDA-Public Use
  Company Number: LTI2011A00219

PATIENT
  Age: 72 Year
  Sex: Male

DRUGS (7)
  1. ACTOS [Suspect]
     Indication: TYPE 2 DIABETES MELLITUS
     Dosage: ORAL
     Route: 048
     Dates: start: 20080301, end: 20110601
  2. DIGOXIN [Concomitant]
  3. PREVISCAN (FLUINDIONE) [Concomitant]
  4. NEBIVOLOL HCL [Concomitant]
  5. SIMVASTATIN [Concomitant]
  6. PERINDOPRIL [Concomitant]
  7. FUROSEMIDE [Concomitant]

REACTIONS (1)
  - BLADDER TRANSITIONAL CELL CARCINOMA [None]
